FAERS Safety Report 9456002 (Version 1)
Quarter: 2013Q3

REPORT INFORMATION
  Report Type: Spontaneous
  Country: US (occurrence: US)
  Receive Date: 20130813
  Receipt Date: 20130813
  Transmission Date: 20140515
  Serious: Yes (Other)
  Sender: FDA-Public Use
  Company Number: US-BAYER-2013-096111

PATIENT
  Age: 60 Year
  Sex: Female

DRUGS (2)
  1. ACETYLSALICYLIC ACID (} 100 MG) [Suspect]
     Dosage: 650 MG
  2. NAPROXEN SODIUM ({= 220 MG) [Suspect]
     Dosage: 450 MG

REACTIONS (3)
  - Analgesic asthma syndrome [Recovered/Resolved]
  - Nasal congestion [Recovered/Resolved]
  - Asthma [Recovered/Resolved]
